FAERS Safety Report 4277431-6 (Version None)
Quarter: 2004Q1

REPORT INFORMATION
  Report Type: 
  Country: None (occurrence: None)
  Receive Date: 20040122
  Receipt Date: 20040113
  Transmission Date: 20041129
  Serious: Yes (Hospitalization)
  Sender: FDA-Public Use
  Company Number: JP-BRISTOL-MYERS SQUIBB COMPANY-12476651

PATIENT
  Age: 82 Year
  Sex: Male

DRUGS (4)
  1. BLEOMYCIN [Suspect]
     Indication: HODGKIN'S DISEASE
     Route: 042
     Dates: start: 20031202, end: 20031202
  2. DACARBAZINE [Suspect]
     Indication: HODGKIN'S DISEASE
     Route: 042
     Dates: start: 20031202, end: 20031202
  3. EXSAL [Suspect]
     Indication: HODGKIN'S DISEASE
     Route: 042
     Dates: start: 20031202, end: 20031202
  4. ADRIAMYCIN PFS [Concomitant]
     Indication: HODGKIN'S DISEASE
     Route: 042
     Dates: start: 20031202, end: 20031202

REACTIONS (3)
  - SEPTIC SHOCK [None]
  - SHOCK [None]
  - STAPHYLOCOCCAL SEPSIS [None]
